FAERS Safety Report 7946192-9 (Version None)
Quarter: 2011Q4

REPORT INFORMATION
  Report Type: 
  Country: None (occurrence: None)
  Receive Date: 20111122
  Receipt Date: 20111109
  Transmission Date: 20120403
  Serious: Yes (Other)
  Sender: FDA-Public Use
  Company Number: 2011SP053045

PATIENT
  Age: 4 Year
  Sex: Male
  Weight: 20 kg

DRUGS (3)
  1. SINGULAIR [Suspect]
     Indication: ASTHMA PROPHYLAXIS
     Dosage: 4 MG
     Dates: start: 20110601, end: 20110701
  2. SINGULAIR [Suspect]
     Indication: ASTHMA PROPHYLAXIS
     Dosage: 4 MG
     Dates: start: 20110701, end: 20110920
  3. NASONEX [Suspect]
     Indication: RHINITIS ALLERGIC
     Dosage: NAS
     Dates: start: 20110701

REACTIONS (6)
  - IRRITABILITY [None]
  - SKIN HYPERTROPHY [None]
  - SKIN DISORDER [None]
  - MOOD ALTERED [None]
  - EYE ALLERGY [None]
  - AGGRESSION [None]
